FAERS Safety Report 8025317-3 (Version None)
Quarter: 2011Q4

REPORT INFORMATION
  Report Type: 
  Country: None (occurrence: None)
  Receive Date: 20111130
  Receipt Date: 20110308
  Transmission Date: 20120403
  Serious: Yes (Hospitalization)
  Sender: FDA-Public Use
  Company Number: 324621

PATIENT
  Age: 26 Year
  Sex: Male
  Weight: 68.5 kg

DRUGS (5)
  1. LISINOPRIL [Concomitant]
  2. NOVOLOG [Suspect]
     Indication: TYPE 1 DIABETES MELLITUS
     Dosage: SLIDING SCALE, SUBCUTANEOUS
     Route: 058
  3. LANTUS [Concomitant]
  4. LOVASTATIN [Concomitant]
  5. ASPIRIN [Concomitant]

REACTIONS (2)
  - DEVICE FAILURE [None]
  - DIABETIC KETOACIDOSIS [None]
